FAERS Safety Report 6331947-7 (Version None)
Quarter: 2009Q3

REPORT INFORMATION
  Report Type: 
  Country: None (occurrence: None)
  Receive Date: 20090828
  Receipt Date: 20090824
  Transmission Date: 20100115
  Serious: Yes (Death)
  Sender: FDA-Public Use
  Company Number: US-BIOGENIDEC-2009BI022180

PATIENT
  Age: 59 Year
  Sex: Female

DRUGS (8)
  1. TYSABRI [Suspect]
     Indication: MULTIPLE SCLEROSIS
     Route: 042
     Dates: start: 20061221, end: 20071015
  2. LORAZEPAM [Concomitant]
  3. CYMBALTA [Concomitant]
  4. OMEPRAZOLE [Concomitant]
  5. NITROFURANTOIN [Concomitant]
  6. TRAMADOL HCL [Concomitant]
  7. GABAPENTIN [Concomitant]
  8. MEGACE [Concomitant]

REACTIONS (2)
  - ABASIA [None]
  - MYOCARDIAL INFARCTION [None]
